FAERS Safety Report 13542081 (Version 2)
Quarter: 2017Q4

REPORT INFORMATION
  Report Type: Spontaneous
  Country: US (occurrence: US)
  Receive Date: 20170512
  Receipt Date: 20171127
  Transmission Date: 20180320
  Serious: No
  Sender: FDA-Public Use
  Company Number: US-009507513-1705USA005344

PATIENT
  Age: 40 Year
  Sex: Male

DRUGS (2)
  1. ZEPATIER [Suspect]
     Active Substance: ELBASVIR\GRAZOPREVIR
     Indication: HEPATITIS C
     Dosage: 50/100MG
     Route: 048
  2. REBETOL [Concomitant]
     Active Substance: RIBAVIRIN

REACTIONS (3)
  - Chest pain [Not Recovered/Not Resolved]
  - Drug dose omission [Unknown]
  - Insomnia [Not Recovered/Not Resolved]

NARRATIVE: CASE EVENT DATE: 20161202
